FAERS Safety Report 5001564-X (Version None)
Quarter: 2006Q2

REPORT INFORMATION
  Report Type: 
  Country: None (occurrence: None)
  Receive Date: 20060510
  Receipt Date: 20050708
  Transmission Date: 20061013
  Serious: Yes (Other)
  Sender: FDA-Public Use
  Company Number: 2005BH000640

PATIENT
  Age: 44 Year
  Sex: Female

DRUGS (2)
  1. ATIVAN [Suspect]
  2. BUPROPION [Suspect]

REACTIONS (2)
  - FEELING ABNORMAL [None]
  - HALLUCINATION, VISUAL [None]
